FAERS Safety Report 4566330-8 (Version None)
Quarter: 2005Q1

REPORT INFORMATION
  Report Type: 
  Country: None (occurrence: None)
  Receive Date: 20050126
  Receipt Date: 20050126
  Transmission Date: 20050727
  Serious: Yes (Other)
  Sender: FDA-Public Use
  Company Number: None

PATIENT
  Age: 12 Year
  Sex: Male
  Weight: 31.2982 kg

DRUGS (2)
  1. STRATTERA [Suspect]
     Indication: ATTENTION DEFICIT/HYPERACTIVITY DISORDER
     Dosage: 40 MG   ONCE DAILY  ORAL
     Route: 048
     Dates: start: 20030602, end: 20040119
  2. ADDERALL 20 [Concomitant]

REACTIONS (3)
  - ANGER [None]
  - IRRITABILITY [None]
  - MOOD ALTERED [None]
